FAERS Safety Report 9057726 (Version 1)
Quarter: 2013Q1

REPORT INFORMATION
  Report Type: Spontaneous
  Country: US (occurrence: None)
  Receive Date: 20130204
  Receipt Date: 20130204
  Transmission Date: 20140127
  Serious: No
  Sender: FDA-Public Use
  Company Number: None

PATIENT
  Age: 26 Year
  Sex: Male

DRUGS (1)
  1. CARBAMAZEPINE [Suspect]
     Indication: BIPOLAR DISORDER
     Dates: start: 20120920, end: 20121023

REACTIONS (8)
  - Dermatitis [None]
  - Homicidal ideation [None]
  - Suicidal ideation [None]
  - Depression [None]
  - Disease recurrence [None]
  - Affect lability [None]
  - Urticaria [None]
  - Pruritus [None]
